FAERS Safety Report 4748170-X (Version None)
Quarter: 2005Q3

REPORT INFORMATION
  Report Type: 
  Country: None (occurrence: None)
  Receive Date: 20050818
  Receipt Date: 20050511
  Transmission Date: 20060218
  Serious: Yes (Other)
  Sender: FDA-Public Use
  Company Number: US-ROCHE-404613

PATIENT
  Age: 49 Year
  Sex: Female
  Weight: 73.9 kg

DRUGS (1)
  1. PEGASYS [Suspect]
     Indication: HEPATITIS C
     Route: 058
     Dates: start: 20040416, end: 20050408

REACTIONS (2)
  - BREAST DISCHARGE [None]
  - LYMPHADENOPATHY [None]
